FAERS Safety Report 15266266 (Version 2)
Quarter: 2018Q3

REPORT INFORMATION
  Report Type: Spontaneous
  Country: NO (occurrence: NO)
  Receive Date: 20180810
  Receipt Date: 20180814
  Transmission Date: 20181010
  Serious: Yes (Other)
  Sender: FDA-Public Use
  Company Number: NO-JNJFOC-20180806975

PATIENT
  Age: 33 Year
  Sex: Male

DRUGS (1)
  1. INFLIXIMAB [Suspect]
     Active Substance: INFLIXIMAB
     Indication: PSORIATIC ARTHROPATHY
     Route: 042
     Dates: start: 2007

REACTIONS (4)
  - Eosinophilic fasciitis [Unknown]
  - Eosinophilia [Unknown]
  - Lichen sclerosus [Not Recovered/Not Resolved]
  - Soft tissue atrophy [Not Recovered/Not Resolved]

NARRATIVE: CASE EVENT DATE: 2011
